FAERS Safety Report 19468921 (Version 1)
Quarter: 2021Q2

REPORT INFORMATION
  Report Type: Spontaneous
  Country: IN (occurrence: IN)
  Receive Date: 20210628
  Receipt Date: 20210628
  Transmission Date: 20210717
  Serious: Yes (Death)
  Sender: FDA-Public Use
  Company Number: IN-MEDEXUS PHARMA, INC.-2021MED00141

PATIENT
  Age: 74 Year
  Sex: Male

DRUGS (1)
  1. METHOTREXATE. [Suspect]
     Active Substance: METHOTREXATE
     Dosage: 25 MG, 1X/DAY
     Route: 065

REACTIONS (5)
  - Pneumonia [Fatal]
  - Product dispensing error [Fatal]
  - Septic shock [Fatal]
  - Accidental overdose [Fatal]
  - Toxicity to various agents [Fatal]
